FAERS Safety Report 8150677-2 (Version None)
Quarter: 2012Q1

REPORT INFORMATION
  Report Type: 
  Country: None (occurrence: None)
  Receive Date: 20120220
  Receipt Date: 20120215
  Transmission Date: 20120608
  Serious: Yes (Death, Hospitalization)
  Sender: FDA-Public Use
  Company Number: PHEH2012US003921

PATIENT
  Age: 62 Year
  Sex: Male
  Weight: 76.64 kg

DRUGS (3)
  1. REVLIMID [Concomitant]
  2. ZOMETA [Suspect]
     Indication: MULTIPLE MYELOMA
     Dosage: 4 MG, UNK
     Route: 042
     Dates: end: 20110923
  3. VELCADE [Suspect]
     Indication: MULTIPLE MYELOMA
     Dosage: 2.5 MG, QW2
     Route: 058
     Dates: start: 20110823, end: 20110923

REACTIONS (8)
  - RESPIRATORY DISORDER [None]
  - PNEUMONIA [None]
  - COUGH [None]
  - DEATH [None]
  - RENAL FAILURE ACUTE [None]
  - NEUTROPENIA [None]
  - INFLUENZA LIKE ILLNESS [None]
  - FEELING ABNORMAL [None]
